FAERS Safety Report 21246715 (Version 4)
Quarter: 2022Q4

REPORT INFORMATION
  Report Type: Spontaneous
  Country: US (occurrence: US)
  Receive Date: 20220824
  Receipt Date: 20221006
  Transmission Date: 20230112
  Serious: Yes (Hospitalization, Other)
  Sender: FDA-Public Use
  Company Number: US-UNITED THERAPEUTICS-UNT-2022-019084

PATIENT
  Sex: Female

DRUGS (3)
  1. REMODULIN [Suspect]
     Active Substance: TREPROSTINIL
     Indication: Pulmonary arterial hypertension
     Dosage: UNK, CONTINUING
     Route: 058
     Dates: start: 20220626
  2. REMODULIN [Suspect]
     Active Substance: TREPROSTINIL
     Dosage: 0.03136 ?G/KG, CONTINUING
     Route: 058
     Dates: start: 2022
  3. REMODULIN [Suspect]
     Active Substance: TREPROSTINIL
     Dosage: 0.03340 ?G/KG, CONTINUING
     Route: 058
     Dates: start: 2022

REACTIONS (2)
  - Pneumonia [Unknown]
  - Device failure [Unknown]

NARRATIVE: CASE EVENT DATE: 20220101
